FAERS Safety Report 10218678 (Version 1)
Quarter: 2014Q1

REPORT INFORMATION
  Report Type: Spontaneous
  Country: US (occurrence: None)
  Receive Date: 20140306
  Receipt Date: 20140306
  Transmission Date: 20141002
  Serious: Yes (Other)
  Sender: FDA-Public Use
  Company Number: 163-21880-13054473

PATIENT
  Age: 90 Year
  Sex: Female

DRUGS (21)
  1. REVLIMID (LENALIDOMIDE) (5 MILLIGRAM, CAPSULES) [Suspect]
     Indication: 5Q MINUS SYNDROME
     Dosage: 5 MG, 21 IN 28 D, PO  09/08/2012 - UNKNOWN THERAPY DATES
     Route: 048
     Dates: start: 20120908
  2. PRBC (RED BLOOD CELLS) [Concomitant]
  3. EXJADE (DEFERASIROX) DISPERSIBLE TABLET [Concomitant]
  4. GABAPENTIN (GABAPENTIN) [Concomitant]
  5. ACETAMINOPHEN (PARACETAMOL) [Concomitant]
  6. CALCIUM CARBONATE/CHOLECALCIFEROL (LEKOVIT CA) [Concomitant]
  7. CETIRIZINE (CETIRIZINE) [Concomitant]
  8. COUMADIN (WARFARIN SODIUM) [Concomitant]
  9. DAILY MUL;TI (DAILY MULTIVIT) [Concomitant]
  10. DIGOXIN (DIGOXIN) [Concomitant]
  11. DILTIAZEM ER (DILTIAZEM HYDROCHLORIDE) [Concomitant]
  12. FUROSEMIDE (FUROSEMIDE) [Concomitant]
  13. DILTIAZEM ER (DILTIAZEM HYDROCHLORIDE) [Concomitant]
  14. FUROSEMIDE (FUROSEMIDE) [Concomitant]
  15. LEVOTHYROXINDE (LEVOTHYROXINE) [Concomitant]
  16. LORATADINE (LORATADINE) (LORATADINE) [Concomitant]
  17. METOPROLOL SUCCINATE ER (METOPROLOL SUCCINATE) [Concomitant]
  18. OMEPRAZOLE (OMEPRAZOLE) [Concomitant]
  19. OXYBUTYNIN CHLORIDE ER (OXYBUTYNIN HYDROCHLORIDE) [Concomitant]
  20. POTASSIUM CHLORIDE ER (POTASSIUM CHLORIDE) [Concomitant]
  21. REFRESH PM (REFRESH PM) [Concomitant]

REACTIONS (4)
  - Drug hypersensitivity [None]
  - Rash [None]
  - Pruritus [None]
  - Thrombocytopenia [None]
